FAERS Safety Report 10184691 (Version 1)
Quarter: 2014Q2

REPORT INFORMATION
  Report Type: Report from Study
  Country: CA (occurrence: CA)
  Receive Date: 20140521
  Receipt Date: 20140521
  Transmission Date: 20141212
  Serious: Yes (Other)
  Sender: FDA-Public Use
  Company Number: CA-JNJFOC-20140509634

PATIENT
  Age: 71 Year
  Sex: Female
  Weight: 29.94 kg

DRUGS (1)
  1. REMICADE [Suspect]
     Indication: CROHN^S DISEASE
     Dosage: FOR 52 WEEKS
     Route: 042
     Dates: start: 20110901

REACTIONS (2)
  - Asthma [Unknown]
  - Nasopharyngitis [Unknown]
